FAERS Safety Report 18765714 (Version 1)
Quarter: 2021Q1

REPORT INFORMATION
  Report Type: Spontaneous
  Country: US (occurrence: US)
  Receive Date: 20210120
  Receipt Date: 20210120
  Transmission Date: 20210419
  Serious: Yes (Other)
  Sender: FDA-Public Use
  Company Number: US-MALLINCKRODT-T202100199

PATIENT
  Age: 8 Month
  Sex: Female
  Weight: 8 kg

DRUGS (1)
  1. INOMAX [Suspect]
     Active Substance: NITRIC OXIDE
     Indication: PULMONARY HYPERTENSION
     Dosage: 20 PPM, VIA INHALATION
     Route: 055
     Dates: start: 20201202

REACTIONS (3)
  - Product use issue [Not Recovered/Not Resolved]
  - Device failure [Not Recovered/Not Resolved]
  - Neonatal hypoxia [Recovered/Resolved]

NARRATIVE: CASE EVENT DATE: 20201202
